FAERS Safety Report 5329423-3 (Version None)
Quarter: 2007Q1

REPORT INFORMATION
  Report Type: 
  Country: None (occurrence: None)
  Receive Date: 20070220
  Receipt Date: 20060323
  Transmission Date: 20070707
  Serious: Yes (Hospitalization)
  Sender: FDA-Public Use
  Company Number: PHEH2006US03872

PATIENT
  Age: 69 Year
  Sex: Male

DRUGS (13)
  1. STARLIX [Suspect]
     Indication: DIABETES MELLITUS
     Dosage: ONCE/SINGLE, BOTH EYES
     Dates: start: 20060317, end: 20060317
  2. ISOSORBIDE DINITRATE [Concomitant]
  3. ATELEC (CILNIDIPINE) [Concomitant]
  4. LISINOPRIL [Concomitant]
  5. CLONIDINE [Concomitant]
  6. REGLAN [Concomitant]
  7. COLACE (DOCUSATE SODIUM) [Concomitant]
  8. LABETALOL HCL [Concomitant]
  9. PREVACID [Concomitant]
  10. NITRO (GLYCERYL TRINITRATE) [Concomitant]
  11. ULTRAM [Concomitant]
  12. ZOCOR [Concomitant]
  13. COMBIVENT [Concomitant]

REACTIONS (6)
  - BLOOD GLUCOSE DECREASED [None]
  - DEPRESSED LEVEL OF CONSCIOUSNESS [None]
  - HYPOGLYCAEMIA [None]
  - INCOHERENT [None]
  - MENTAL STATUS CHANGES [None]
  - SENSORY DISTURBANCE [None]
